FAERS Safety Report 10102236 (Version 2)
Quarter: 2014Q2

REPORT INFORMATION
  Report Type: Other
  Country: US (occurrence: US)
  Receive Date: 20140424
  Receipt Date: 20140625
  Transmission Date: 20141212
  Serious: Yes (Hospitalization, Other)
  Sender: FDA-Public Use
  Company Number: US-GSKPPD-2014GSK000028

PATIENT
  Age: 69 Year
  Sex: Male

DRUGS (5)
  1. AVANDIA [Suspect]
     Indication: DIABETES MELLITUS
     Route: 048
     Dates: start: 20060604, end: 20090126
  2. TARKA [Concomitant]
     Dosage: 4/240 MG
     Route: 048
  3. TOPROL XL [Concomitant]
     Route: 048
  4. ZOCOR [Concomitant]
     Route: 048
  5. ASPIRIN [Concomitant]
     Route: 048

REACTIONS (4)
  - Cerebrovascular accident [Recovered/Resolved]
  - Myocardial infarction [None]
  - Coronary artery bypass [Recovered/Resolved]
  - Cardiac failure congestive [None]
